FAERS Safety Report 10120970 (Version 2)
Quarter: 2014Q2

REPORT INFORMATION
  Report Type: Spontaneous
  Country: US (occurrence: US)
  Receive Date: 20140425
  Receipt Date: 20140516
  Transmission Date: 20141212
  Serious: Yes (Hospitalization)
  Sender: FDA-Public Use
  Company Number: US-GLAXOSMITHKLINE-A1070133A

PATIENT
  Age: 89 Year
  Sex: Female

DRUGS (15)
  1. ADVAIR HFA [Suspect]
     Indication: ASTHMA
     Dosage: 1PUFF TWICE PER DAY
     Route: 055
  2. VENTOLIN [Suspect]
     Indication: DYSPNOEA
     Dosage: 1PUFF AS REQUIRED
     Route: 055
  3. CEFUROXIME AXETIL [Suspect]
     Indication: PRODUCT USED FOR UNKNOWN INDICATION
     Route: 048
     Dates: start: 201306, end: 201403
  4. LEVOFLOXACIN [Suspect]
     Indication: PRODUCT USED FOR UNKNOWN INDICATION
     Route: 048
     Dates: start: 201306, end: 201403
  5. METRONIDAZOLE [Suspect]
     Indication: PRODUCT USED FOR UNKNOWN INDICATION
     Route: 048
     Dates: start: 201306, end: 201403
  6. ENALAPRIL [Concomitant]
  7. ASPIRIN [Concomitant]
  8. ATENOLOL [Concomitant]
  9. MONTELUKAST [Concomitant]
  10. CARAFATE [Concomitant]
  11. IRON [Concomitant]
  12. UNKNOWN EYE MEDICATION [Concomitant]
  13. MULTIVITAMIN [Concomitant]
  14. CHONDROITIN [Concomitant]
  15. VITAMIN D [Concomitant]

REACTIONS (8)
  - Intestinal ischaemia [Recovering/Resolving]
  - Myocardial infarction [Recovering/Resolving]
  - Blood pressure increased [Recovering/Resolving]
  - Oral candidiasis [Recovering/Resolving]
  - Fungal infection [Recovering/Resolving]
  - Asthenia [Recovering/Resolving]
  - Colonoscopy [Recovering/Resolving]
  - Constipation [Recovering/Resolving]
